FAERS Safety Report 9579856 (Version 2)
Quarter: 2013Q4

REPORT INFORMATION
  Report Type: Spontaneous
  Country: US (occurrence: US)
  Receive Date: 20131002
  Receipt Date: 20131015
  Transmission Date: 20140711
  Serious: Yes (Death, Hospitalization)
  Sender: FDA-Public Use
  Company Number: US-AMGEN-USASP2013068046

PATIENT
  Age: 93 Year
  Sex: Female

DRUGS (1)
  1. PROLIA [Suspect]
     Indication: OSTEOPOROSIS
     Route: 065

REACTIONS (12)
  - Death [Fatal]
  - Dyspnoea [Recovering/Resolving]
  - Pulmonary oedema [Unknown]
  - Toxicity to various agents [Unknown]
  - Hyperkalaemia [Unknown]
  - Pleural effusion [Unknown]
  - Pericardial effusion [Unknown]
  - Renal failure acute [Not Recovered/Not Resolved]
  - Hypotension [Unknown]
  - Metabolic encephalopathy [Unknown]
  - Hypocalcaemia [Unknown]
  - Hypoglycaemia [Unknown]
